FAERS Safety Report 11797825 (Version 1)
Quarter: 2015Q4

REPORT INFORMATION
  Report Type: Spontaneous
  Country: PL (occurrence: PL)
  Receive Date: 20151203
  Receipt Date: 20151203
  Transmission Date: 20160305
  Serious: Yes (Life-Threatening, Hospitalization, Other)
  Sender: FDA-Public Use
  Company Number: PL-GLAXOSMITHKLINE-PL2015170679

PATIENT
  Age: 53 Year
  Sex: Male

DRUGS (3)
  1. UNIDOX [Suspect]
     Active Substance: DOXYCYCLINE
     Indication: PYREXIA
     Route: 048
     Dates: start: 20140717, end: 20140718
  2. ZINNAT [Suspect]
     Active Substance: CEFUROXIME AXETIL
     Indication: RESPIRATORY TRACT INFECTION
     Dosage: DOSE: 500; DOSE UNIT: NOT SPECIFIED
     Route: 048
     Dates: start: 20140718, end: 20140721
  3. MILURIT [Suspect]
     Active Substance: ALLOPURINOL
     Indication: GOUT
     Dosage: DOSE: 300; DOSE UNIT: NOT SPECIFIED
     Route: 048
     Dates: start: 20140707, end: 20140721

REACTIONS (1)
  - Toxic epidermal necrolysis [Recovering/Resolving]

NARRATIVE: CASE EVENT DATE: 20140718
